FAERS Safety Report 6303469-0 (Version None)
Quarter: 2009Q3

REPORT INFORMATION
  Report Type: 
  Country: None (occurrence: None)
  Receive Date: 20090810
  Receipt Date: 20090728
  Transmission Date: 20100115
  Serious: Yes (Other)
  Sender: FDA-Public Use
  Company Number: PHHY2009GB30951

PATIENT
  Sex: Male

DRUGS (3)
  1. CLOZARIL [Suspect]
     Indication: SCHIZOPHRENIA
     Dosage: 600 MG/DAY
     Dates: start: 19940201
  2. WARFARIN [Concomitant]
  3. PROCYCLIDINE HYDROCHLORIDE 2MG TAB [Concomitant]

REACTIONS (8)
  - DRY MOUTH [None]
  - GENERAL PHYSICAL CONDITION ABNORMAL [None]
  - HYPOTENSION [None]
  - INSOMNIA [None]
  - NEUTROPHIL COUNT DECREASED [None]
  - OROPHARYNGEAL PAIN [None]
  - TREMOR [None]
  - WHITE BLOOD CELL COUNT DECREASED [None]
